FAERS Safety Report 8266398-1 (Version None)
Quarter: 2012Q2

REPORT INFORMATION
  Report Type: 
  Country: None (occurrence: None)
  Receive Date: 20120406
  Receipt Date: 20120403
  Transmission Date: 20120825
  Serious: Yes (Hospitalization)
  Sender: FDA-Public Use
  Company Number: US-ALLERGAN-1202797US

PATIENT
  Age: 5 Year
  Sex: Male
  Weight: 13 kg

DRUGS (4)
  1. PHENOL [Suspect]
     Indication: PRODUCT USED FOR UNKNOWN INDICATION
     Dosage: 6 UNK, UNK
     Dates: start: 20100329, end: 20100329
  2. BACLOFEN [Concomitant]
     Indication: MUSCLE SPASTICITY
     Dosage: 5 MG, UNK
     Route: 048
     Dates: start: 20090101
  3. MIRALAX [Concomitant]
     Indication: CONSTIPATION
     Dosage: UNK
     Route: 048
  4. BOTULINUM TOXIN TYPE A [Suspect]
     Indication: PRODUCT USED FOR UNKNOWN INDICATION
     Dosage: 200 UNITS, UNK
     Dates: start: 20100329, end: 20100329

REACTIONS (2)
  - LYMPHOEDEMA [None]
  - MUSCULAR WEAKNESS [None]
